FAERS Safety Report 8812888 (Version 8)
Quarter: 2013Q2

REPORT INFORMATION
  Report Type: Report from Study
  Country: CA (occurrence: CA)
  Receive Date: 20120927
  Receipt Date: 20130524
  Transmission Date: 20140414
  Serious: Yes (Death, Other)
  Sender: FDA-Public Use
  Company Number: CA-ROCHE-1100190

PATIENT
  Age: 49 Year
  Sex: Female
  Weight: 79 kg

DRUGS (18)
  1. BEVACIZUMAB [Suspect]
     Indication: GLIOBLASTOMA
     Dosage: START DATE 24/JUL/2012
     Route: 042
     Dates: end: 20121019
  2. DEXAMETHASONE [Suspect]
     Indication: PRODUCT USED FOR UNKNOWN INDICATION
     Route: 048
  3. DEXAMETHASONE [Suspect]
     Dosage: DOSE DECREASED
     Route: 048
  4. TOPIRAMATE [Concomitant]
  5. LEVETIRACETAM [Concomitant]
  6. CLOBAZAM [Concomitant]
  7. CYCLOKAPRON [Concomitant]
  8. PANTOPRAZOLE [Concomitant]
  9. OXAZEPAM [Concomitant]
  10. ACETAMINOPHEN [Concomitant]
     Indication: PREMEDICATION
     Route: 048
     Dates: start: 20120724, end: 20121019
  11. ACETAMINOPHEN [Concomitant]
     Route: 065
     Dates: start: 20121005, end: 20121005
  12. SYNTHROID [Concomitant]
  13. CORTISONE [Concomitant]
     Route: 065
  14. CORTISONE [Concomitant]
     Route: 065
  15. DIPHENHYDRAMINE HCL [Concomitant]
     Indication: PREMEDICATION
     Route: 048
     Dates: start: 20120724, end: 20121019
  16. DIPHENHYDRAMINE HCL [Concomitant]
     Route: 065
     Dates: start: 20121005, end: 20121005
  17. DEXAMETHASON [Concomitant]
     Dosage: REPORTED AS PRO DEXAMETHASONE
     Route: 065
  18. TOPIRAMATE [Concomitant]
     Dosage: REPORTED AS PRO TOPIRAMATE
     Route: 065

REACTIONS (44)
  - Disease progression [Fatal]
  - Lymphocyte count decreased [Not Recovered/Not Resolved]
  - Dyspnoea [Not Recovered/Not Resolved]
  - Muscular weakness [Not Recovered/Not Resolved]
  - Asthenia [Not Recovered/Not Resolved]
  - Confusional state [Not Recovered/Not Resolved]
  - Memory impairment [Not Recovered/Not Resolved]
  - Back pain [Not Recovered/Not Resolved]
  - Hypokinesia [Not Recovered/Not Resolved]
  - White blood cell count decreased [Not Recovered/Not Resolved]
  - Red blood cell count decreased [Not Recovered/Not Resolved]
  - Mean cell haemoglobin concentration increased [Not Recovered/Not Resolved]
  - Red cell distribution width increased [Not Recovered/Not Resolved]
  - Platelet count decreased [Not Recovered/Not Resolved]
  - Blood alkaline phosphatase decreased [Not Recovered/Not Resolved]
  - Blood potassium decreased [Not Recovered/Not Resolved]
  - Cystitis [Not Recovered/Not Resolved]
  - Oedema peripheral [Not Recovered/Not Resolved]
  - Oedema peripheral [Not Recovered/Not Resolved]
  - Swelling face [Not Recovered/Not Resolved]
  - Local swelling [Not Recovered/Not Resolved]
  - Local swelling [Not Recovered/Not Resolved]
  - Hypoaesthesia [Not Recovered/Not Resolved]
  - Fatigue [Not Recovered/Not Resolved]
  - Aphasia [Not Recovered/Not Resolved]
  - Headache [Recovered/Resolved]
  - Muscle spasms [Not Recovered/Not Resolved]
  - Pain in extremity [Not Recovered/Not Resolved]
  - Oedema [Not Recovered/Not Resolved]
  - Abdominal pain [Not Recovered/Not Resolved]
  - Gait disturbance [Not Recovered/Not Resolved]
  - Injection site erythema [Recovered/Resolved]
  - Vision blurred [Not Recovered/Not Resolved]
  - Amnesia [Not Recovered/Not Resolved]
  - Swelling [Not Recovered/Not Resolved]
  - Pain in extremity [Recovering/Resolving]
  - Erythema [Not Recovered/Not Resolved]
  - Pain [Recovering/Resolving]
  - Asthenia [Not Recovered/Not Resolved]
  - Pain in extremity [Not Recovered/Not Resolved]
  - Oedema peripheral [Recovering/Resolving]
  - Somnolence [Not Recovered/Not Resolved]
  - Weight increased [Not Recovered/Not Resolved]
  - General physical health deterioration [Not Recovered/Not Resolved]
